FAERS Safety Report 11095976 (Version 1)
Quarter: 2015Q2

REPORT INFORMATION
  Report Type: Spontaneous
  Country: US (occurrence: None)
  Receive Date: 20150506
  Receipt Date: 20150506
  Transmission Date: 20150821
  Serious: No
  Sender: FDA-Public Use
  Company Number: None

PATIENT
  Age: 34 Year
  Sex: Female
  Weight: 128.37 kg

DRUGS (7)
  1. MILK THISSLE [Concomitant]
  2. MULTI-VITAMIN [Concomitant]
     Active Substance: .ALPHA.-TOCOPHEROL ACETATE, DL-\ASCORBIC ACID\CYANOCOBALAMIN\FLUORIDE ION\FOLIC ACID\NIACIN\PYRIDOXINE\RIBOFLAVIN\THIAMINE\VITAMIN A\VITAMIN D
  3. HCG [Suspect]
     Active Substance: GONADOTROPHIN, CHORIONIC
  4. 20/30 FAST TRACK TRACK HOMEOPATHIC DRO 10 DROPS 20/30 FAST TRACK [Suspect]
     Active Substance: HOMEOPATHICS
     Indication: WEIGHT DECREASED
     Dosage: 10 DROPS  TAKEN TUNDER THE TONGUE
     Dates: start: 20150417, end: 20150427
  5. MIRENA [Concomitant]
     Active Substance: LEVONORGESTREL
  6. PROBIOTICS [Concomitant]
     Active Substance: PROBIOTICS NOS
  7. RELORA [Concomitant]

REACTIONS (5)
  - Restlessness [None]
  - Headache [None]
  - Muscle spasms [None]
  - Impaired work ability [None]
  - Dry mouth [None]

NARRATIVE: CASE EVENT DATE: 20150505
